FAERS Safety Report 8491127-6 (Version None)
Quarter: 2012Q3

REPORT INFORMATION
  Report Type: 
  Country: None (occurrence: None)
  Receive Date: 20120706
  Receipt Date: 20120702
  Transmission Date: 20120928
  Serious: Yes (Hospitalization)
  Sender: FDA-Public Use
  Company Number: US-BAYER-2011-044929

PATIENT
  Age: 28 Year
  Sex: Female
  Weight: 108.84 kg

DRUGS (1)
  1. YASMIN [Suspect]
     Indication: CONTRACEPTION
     Dosage: UNK
     Route: 048
     Dates: start: 20020401, end: 20070101

REACTIONS (9)
  - FEAR [None]
  - INJURY [None]
  - PAIN IN EXTREMITY [None]
  - PSYCHOLOGICAL TRAUMA [None]
  - DEEP VEIN THROMBOSIS [None]
  - ABASIA [None]
  - PAIN [None]
  - ANHEDONIA [None]
  - ANXIETY [None]
